FAERS Safety Report 8515823-7 (Version None)
Quarter: 2012Q3

REPORT INFORMATION
  Report Type: 
  Country: None (occurrence: None)
  Receive Date: 20120705
  Receipt Date: 20120620
  Transmission Date: 20120928
  Serious: Yes (Other)
  Sender: FDA-Public Use
  Company Number: DSA_58255_2012

PATIENT
  Sex: Female

DRUGS (1)
  1. ELIDEL [Suspect]
     Indication: WOUND
     Dosage: (1% 100G TOPICAL), (1% 100G USED INTERMITTENTLY TOPICAL)
     Route: 061
     Dates: start: 20100801

REACTIONS (4)
  - SKIN WOUND [None]
  - EYE OEDEMA [None]
  - LACTOSE INTOLERANCE [None]
  - DISEASE RECURRENCE [None]
